FAERS Safety Report 6998280 (Version 8)
Quarter: 2012Q4

REPORT INFORMATION
  Report Type: Report from Study
  Country: DE (occurrence: DE)
  Receive Date: 20090520
  Receipt Date: 20121026
  Transmission Date: 20130627
  Serious: Yes (Hospitalization)
  Sender: FDA-Public Use
  Company Number: DE-BRISTOL-MYERS SQUIBB COMPANY-14628812

PATIENT
  Age: 65 Year
  Sex: Female
  Weight: 94 kg

DRUGS (3)
  1. CETUXIMAB [Suspect]
     Indication: GASTROOESOPHAGEAL CANCER
     Dosage: Strength:5mg/ml
recent infusion 6May09
     Route: 042
     Dates: start: 20090401
  2. CISPLATIN FOR INJ [Suspect]
     Indication: GASTROOESOPHAGEAL CANCER
     Dosage: given on day1 of cycle;
recent infusion-6May09
     Route: 042
     Dates: start: 20090402
  3. CAPECITABINE [Suspect]
     Indication: GASTROOESOPHAGEAL CANCER
     Dosage: Taken from day1-15
recent dose-9May09
Tab form
     Route: 048
     Dates: start: 20090401

REACTIONS (2)
  - Nausea [Recovered/Resolved]
  - Decreased appetite [Recovered/Resolved]
